FAERS Safety Report 4932441-8 (Version None)
Quarter: 2006Q1

REPORT INFORMATION
  Report Type: 
  Country: None (occurrence: None)
  Receive Date: 20060301
  Receipt Date: 20060217
  Transmission Date: 20060701
  Serious: Yes (Hospitalization)
  Sender: FDA-Public Use
  Company Number: 2006026906

PATIENT
  Age: 75 Year
  Sex: Female

DRUGS (7)
  1. XANAX [Suspect]
     Indication: ILL-DEFINED DISORDER
     Dosage: 1.5 MG (0.5 MG, 3 IN 1 D), ORAL
     Route: 048
     Dates: start: 19980916
  2. NOZINAN (LEVOMEPROMAZINE) [Suspect]
     Indication: ILL-DEFINED DISORDER
     Dates: start: 19980916, end: 20051011
  3. CLONAZEPAM [Suspect]
     Indication: ILL-DEFINED DISORDER
     Dosage: ORAL
     Route: 048
     Dates: start: 19980916, end: 20051011
  4. REQUIP [Suspect]
     Indication: PARKINSON'S DISEASE
     Dosage: 0.75 MG (0.25 MG, 3 IN 1 D), ORAL
     Route: 048
     Dates: start: 19980916
  5. IMOVANE                 (ZOPICLONE) [Suspect]
     Indication: ILL-DEFINED DISORDER
     Dosage: 7.5 MG, 1 IN 1 D, ORAL
     Route: 048
     Dates: start: 19980916
  6. MODOPAR                               (BENSERAZIDE HYDROCHLORIDE, LEVO [Suspect]
     Indication: PARKINSON'S DISEASE
     Dosage: 1000 MG (250 MG, 4 IN 1 D), ORAL
     Route: 048
     Dates: start: 19980916
  7. OMEPRAZOLE [Concomitant]

REACTIONS (4)
  - DYSPHAGIA [None]
  - GAIT DISTURBANCE [None]
  - INSOMNIA [None]
  - MENTAL IMPAIRMENT [None]
